FAERS Safety Report 14968186 (Version 10)
Quarter: 2019Q3

REPORT INFORMATION
  Report Type: Spontaneous
  Country: US (occurrence: US)
  Receive Date: 20180604
  Receipt Date: 20190722
  Transmission Date: 20191004
  Serious: Yes (Hospitalization, Other)
  Sender: FDA-Public Use
  Company Number: US-PFIZER INC-2018224752

PATIENT
  Age: 32 Year
  Sex: Male

DRUGS (61)
  1. DILANTIN [Suspect]
     Active Substance: PHENYTOIN
     Dosage: 300 MG, DAILY, AT BEDTIME
     Route: 048
     Dates: start: 20100412, end: 20100413
  2. DILANTIN [Suspect]
     Active Substance: PHENYTOIN
     Dosage: 400 MG, 2X/DAY (REPORTED AS TOOK TWO 100 MG CAPSULES EVERY AM AND TWO 100 MG CAPSULES EVERY PM)
     Route: 048
     Dates: start: 20111130, end: 20120228
  3. ZONISAMIDE. [Concomitant]
     Active Substance: ZONISAMIDE
     Indication: EPILEPSY
     Dosage: UNK UNK, 1X/DAY
     Dates: start: 2017
  4. ZONISAMIDE. [Concomitant]
     Active Substance: ZONISAMIDE
     Dosage: 50 MG, DAILY
     Route: 048
  5. CIPRODEX [Concomitant]
     Active Substance: CIPROFLOXACIN HYDROCHLORIDE\DEXAMETHASONE
     Dosage: OTIC SUSPENSION 4 DROPS INTO THE LEFT EAR, 2X/DAY
     Dates: start: 20111125, end: 20111129
  6. VALIUM [Concomitant]
     Active Substance: DIAZEPAM
     Indication: MUSCLE SPASMS
     Dosage: 1 DF, EVERY 6 HOURS (Q6H)
     Route: 048
  7. DILANTIN [Suspect]
     Active Substance: PHENYTOIN
     Indication: SEIZURE
     Dosage: UNK
     Dates: start: 2002, end: 2017
  8. DILANTIN [Suspect]
     Active Substance: PHENYTOIN
     Indication: EPILEPSY
     Dosage: UNK
     Dates: start: 2006, end: 2017
  9. DILANTIN [Suspect]
     Active Substance: PHENYTOIN
     Dosage: UNK
     Dates: start: 2006, end: 2017
  10. KEPPRA [Concomitant]
     Active Substance: LEVETIRACETAM
     Indication: EPILEPSY
     Dosage: 1.5 DF, 2X/DAY
     Route: 048
  11. LAMICTAL [Concomitant]
     Active Substance: LAMOTRIGINE
     Dosage: 50 MG, 2X/WEEK, TWICE A DAY
     Route: 048
  12. ZANTAC [Concomitant]
     Active Substance: RANITIDINE HYDROCHLORIDE
     Dosage: 300 MG, 2X/DAY
     Route: 048
     Dates: start: 20130308, end: 20130821
  13. ZOFRAN [Concomitant]
     Active Substance: ONDANSETRON HYDROCHLORIDE
     Indication: NAUSEA
     Dosage: 4 MG, AS NEEDED EVERY 6 HOURS
     Route: 048
     Dates: start: 20130302, end: 20140302
  14. AUGMENTIN [Concomitant]
     Active Substance: AMOXICILLIN\CLAVULANATE POTASSIUM
     Dosage: [AMOXICILLIN 875MG]/[CLAVULANIC ACID 125MG] 1 DF, 2X/DAY WITH BREAKFAST AND DINNER
     Route: 048
     Dates: start: 20111125, end: 20111129
  15. LORAZEPAM. [Concomitant]
     Active Substance: LORAZEPAM
     Dosage: UNK
     Route: 048
     Dates: start: 20100315
  16. ALLEGRA [Concomitant]
     Active Substance: FEXOFENADINE HYDROCHLORIDE
     Indication: MULTIPLE ALLERGIES
     Dosage: UNK, DAILY
  17. DILANTIN [Suspect]
     Active Substance: PHENYTOIN
     Dosage: 200 MG IN THE MORNING AND 300 MG AT BEDTIME
     Route: 048
  18. DILANTIN [Suspect]
     Active Substance: PHENYTOIN
     Dosage: 300 MG, DAILY, AT BEDTIME
     Route: 048
     Dates: start: 20100413, end: 20111128
  19. DILANTIN [Suspect]
     Active Substance: PHENYTOIN
     Indication: SEIZURE
     Dosage: UNK
     Dates: start: 2002, end: 2017
  20. DILANTIN [Suspect]
     Active Substance: PHENYTOIN
     Dosage: 300 MG, DAILY, AT BEDTIME (3 CAPSULES)
     Route: 048
     Dates: start: 20081216, end: 20091015
  21. PHENYTEK [Suspect]
     Active Substance: PHENYTOIN SODIUM
     Indication: SEIZURE
     Dosage: 300 MG, DAILY
     Route: 048
     Dates: start: 20081119, end: 20090401
  22. KEPPRA [Concomitant]
     Active Substance: LEVETIRACETAM
     Dosage: UNK UNK, 2X/DAY
     Dates: start: 2016, end: 2017
  23. MOTRIN [Concomitant]
     Active Substance: IBUPROFEN
     Indication: PAIN
     Dosage: TAB BY MOUTH EVERY 6 HOURS, AS NEEDED
     Route: 048
     Dates: start: 20130302, end: 20140302
  24. TRILEPTAL [Concomitant]
     Active Substance: OXCARBAZEPINE
     Dosage: 150 MG, 2X/DAY
     Route: 048
     Dates: start: 20141219, end: 20150504
  25. LAMICTAL [Concomitant]
     Active Substance: LAMOTRIGINE
     Dosage: 50 MG, ONCE A WEEK, TWICE A DAY
     Route: 048
  26. MARIJUANA [Concomitant]
     Active Substance: CANNABIS SATIVA SUBSP. INDICA TOP
     Dosage: UNK UNK, 2X/WEEK
     Dates: start: 2011
  27. DILANTIN [Suspect]
     Active Substance: PHENYTOIN
     Dosage: 300 MG, DAILY AT BED TIME
     Route: 048
     Dates: end: 20080916
  28. DILANTIN [Suspect]
     Active Substance: PHENYTOIN
     Dosage: 300 MG, DAILY, AT BEDTIME (REPORTED AS 100 MG, 3 CAPSULE)
     Route: 048
     Dates: start: 20111128, end: 20111130
  29. DILANTIN [Suspect]
     Active Substance: PHENYTOIN
     Dosage: 300 MG, DAILY, 100MG QAM AND 300MG QHS
     Dates: start: 20130821, end: 20130823
  30. DILANTIN [Suspect]
     Active Substance: PHENYTOIN
     Dosage: 400 MG, DAILY (REPORTED AS 100 MG, 4 CAPSULES AT BEDTIME)
     Route: 048
     Dates: start: 20140306, end: 20140310
  31. DILANTIN [Suspect]
     Active Substance: PHENYTOIN
     Dosage: 400 MG, EVERY NIGHT (REPORTED AS REPORTED AS 100 MG, 4 CAPSULES QHS)
     Route: 048
     Dates: start: 20140228, end: 20141219
  32. DILANTIN [Suspect]
     Active Substance: PHENYTOIN
     Dosage: 300 MG, DAILY, TOOK THREE 100 MG CAPSULES AT BEDTIME
     Route: 048
     Dates: start: 20120618, end: 20130821
  33. DILANTIN [Suspect]
     Active Substance: PHENYTOIN
     Dosage: 400 MG, DAILY (REPORTED AS 100 MG, 4 CAPSULES AT BEDTIME)
     Route: 048
     Dates: start: 20140223, end: 20140306
  34. DILANTIN [Suspect]
     Active Substance: PHENYTOIN
     Dosage: 400 MG, DAILY (REPORTED AS 100 MG, 4 CAPSULES AT BEDTIME)
     Route: 048
     Dates: start: 20140310, end: 20140317
  35. DILANTIN [Suspect]
     Active Substance: PHENYTOIN
     Indication: EPILEPSY
     Dosage: UNK
     Route: 042
     Dates: start: 2002, end: 2017
  36. NORCO [Concomitant]
     Active Substance: ACETAMINOPHEN\HYDROCODONE BITARTRATE
     Indication: PAIN
     Dosage: [HYDROCODONE BITARTRATE 5MG]/[PARACETAMOL 325MG]1-2 TABS EVERY 4 HOURS, AS NEEDED
     Route: 048
     Dates: start: 20141219, end: 20150504
  37. ZOFRAN [Concomitant]
     Active Substance: ONDANSETRON HYDROCHLORIDE
     Indication: VOMITING
  38. BACTRIM DS [Concomitant]
     Active Substance: SULFAMETHOXAZOLE\TRIMETHOPRIM
     Dosage: [SULFAMETHOXAZOLE 800MG]/[TRIMETHOPRIM 160MG] 1 DF, 2X/DAY
     Route: 048
     Dates: start: 20110413, end: 20110620
  39. DILANTIN [Suspect]
     Active Substance: PHENYTOIN
     Dosage: 500 MG, DAILY (REPORTED AS 100 MG CAPSULES, 2 IN MORNING AND 3 IN THE EVENING)
     Route: 048
     Dates: start: 20080109, end: 20081119
  40. DILANTIN [Suspect]
     Active Substance: PHENYTOIN
     Dosage: 400 MG, DAILY (REPORTED AS 100 MG, 4 CAPSULES AT BEDTIME)
     Route: 048
     Dates: start: 20140910, end: 20151013
  41. CORTISPORIN [Concomitant]
     Active Substance: BACITRACIN ZINC\HYDROCORTISONE\NEOMYCIN SULFATE\POLYMYXIN B SULFATE
     Dosage: 3.5-10000-1 OTIC SUSPENSION, 4 DROPS INTO THE LEFT EAR 4 TIMES DAILY
     Dates: start: 20131107, end: 20150504
  42. LAMICTAL [Concomitant]
     Active Substance: LAMOTRIGINE
     Dosage: 150 MG, 2X/DAY
     Route: 048
  43. VITAMIN B COMPLEX [Concomitant]
     Active Substance: CYANOCOBALAMIN\DEXPANTHENOL\NIACINAMIDE\PYRIDOXINE HYDROCHLORIDE\RIBOFLAVIN 5^-PHOSPHATE SODIUM\THIAMINE HYDROCHLORIDE\VITAMIN B COMPLEX
     Dosage: UNK
     Route: 048
     Dates: start: 20090401, end: 20130308
  44. DILANTIN [Suspect]
     Active Substance: PHENYTOIN
     Dosage: 400 MG, 1X/DAY (AT BEDTIME ON ODD DAYS OF MONTH)
     Dates: end: 20160229
  45. KEPPRA [Concomitant]
     Active Substance: LEVETIRACETAM
     Indication: SEIZURE
     Dosage: 500 MG, 2X/DAY (REPORTED AS 5 REFILLS)
     Route: 048
     Dates: start: 2016, end: 2017
  46. LAMICTAL [Concomitant]
     Active Substance: LAMOTRIGINE
     Dosage: 50 MG, 2X/WEEK, ONCE A DAY
     Route: 048
     Dates: start: 20130821, end: 20130823
  47. ATIVAN [Concomitant]
     Active Substance: LORAZEPAM
     Dosage: 1 MG, DAILY
     Route: 048
     Dates: start: 20100315, end: 20100315
  48. TRAMADOL. [Concomitant]
     Active Substance: TRAMADOL
     Indication: PAIN
     Dosage: 50 MG, AS NEEDED 1 -2 TABLETS
     Route: 048
  49. DILANTIN [Suspect]
     Active Substance: PHENYTOIN
     Dosage: 300 MG, DAILY (100 MG, 3 CAPSULES AT BEDTIME)
     Route: 048
     Dates: start: 20071101, end: 20080916
  50. DILANTIN [Suspect]
     Active Substance: PHENYTOIN
     Dosage: 300 MG, DAILY, TOOK THREE 100 MG CAPSULES AT BEDTIME
     Route: 048
     Dates: start: 20120228, end: 20120618
  51. DILANTIN [Suspect]
     Active Substance: PHENYTOIN
     Dosage: 300 MG, 1X/DAY (AT BEDTIME ON EVEN DAYS OF MONTH)
     Dates: end: 20160229
  52. DILANTIN [Suspect]
     Active Substance: PHENYTOIN
     Indication: EPILEPSY
     Dosage: UNK
     Dates: start: 2006, end: 2017
  53. DILANTIN [Suspect]
     Active Substance: PHENYTOIN
     Dosage: 300 MG, DAILY, AT BEDTIME (100 MG, 3 CAPSULES)
     Route: 048
     Dates: start: 20091016, end: 20100405
  54. PHENYTOIN SODIUM. [Suspect]
     Active Substance: PHENYTOIN SODIUM
     Indication: SEIZURE
     Dosage: 200 MG, DAILY
     Route: 048
  55. ZONISAMIDE. [Concomitant]
     Active Substance: ZONISAMIDE
     Indication: SEIZURE
     Dosage: UNK
     Dates: start: 2016, end: 2017
  56. KEPPRA [Concomitant]
     Active Substance: LEVETIRACETAM
     Dosage: UNK
     Dates: start: 2017
  57. FOLGARD RX [Concomitant]
     Dosage: 2.2-25-0.5 MG 1 DF, DAILY
     Route: 048
     Dates: start: 20100413, end: 20110620
  58. THIAMINE. [Concomitant]
     Active Substance: THIAMINE
     Dosage: 100 MG, DAILY
     Route: 048
     Dates: end: 20080916
  59. KEFLEX [Concomitant]
     Active Substance: CEPHALEXIN
     Dosage: 500 MG, 4X/DAY
     Route: 048
  60. BENTYL [Concomitant]
     Active Substance: DICYCLOMINE HYDROCHLORIDE
     Dosage: 10 MG, 4X/DAY
     Route: 048
  61. TYLENOL WITH CODEINE [Concomitant]
     Active Substance: ACETAMINOPHEN\CODEINE PHOSPHATE
     Indication: PAIN
     Dosage: 1 DF, EVERY 4 HOURS (Q4H)
     Route: 048

REACTIONS (17)
  - Cerebellar atrophy [Not Recovered/Not Resolved]
  - Speech disorder [Not Recovered/Not Resolved]
  - Seizure [Unknown]
  - Product dose omission [Unknown]
  - Gingival hypertrophy [Unknown]
  - Ataxia [Not Recovered/Not Resolved]
  - Amnesia [Not Recovered/Not Resolved]
  - Hypoaesthesia [Not Recovered/Not Resolved]
  - Muscular weakness [Not Recovered/Not Resolved]
  - Headache [Not Recovered/Not Resolved]
  - Gait disturbance [Not Recovered/Not Resolved]
  - Neuropathy peripheral [Not Recovered/Not Resolved]
  - Tremor [Not Recovered/Not Resolved]
  - Coordination abnormal [Not Recovered/Not Resolved]
  - Epilepsy [Unknown]
  - Disturbance in attention [Unknown]
  - Balance disorder [Not Recovered/Not Resolved]

NARRATIVE: CASE EVENT DATE: 201707
